FAERS Safety Report 10417944 (Version 1)
Quarter: 2014Q3

REPORT INFORMATION
  Report Type: Spontaneous
  Country: US (occurrence: US)
  Receive Date: 20140829
  Receipt Date: 20140829
  Transmission Date: 20150326
  Serious: Yes (Hospitalization)
  Sender: FDA-Public Use
  Company Number: US-RANBAXY-2014US-84844

PATIENT
  Sex: Male

DRUGS (4)
  1. CLINDAMYCIN [Suspect]
     Active Substance: CLINDAMYCIN\CLINDAMYCIN PHOSPHATE
     Indication: SUTURE INSERTION
     Dosage: 600 MG, DAILY
     Route: 042
     Dates: start: 20140805
  2. AUGMENTIN [Suspect]
     Active Substance: AMOXICILLIN\CLAVULANATE POTASSIUM
     Indication: SUTURE INSERTION
     Dosage: UNK
     Route: 065
     Dates: start: 20140726, end: 20140803
  3. CLINDAMYCIN [Suspect]
     Active Substance: CLINDAMYCIN\CLINDAMYCIN PHOSPHATE
     Indication: SUTURE INSERTION
     Dosage: 300 MG, TID
     Route: 065
     Dates: end: 20140816
  4. BACTRIM [Suspect]
     Active Substance: SULFAMETHOXAZOLE\TRIMETHOPRIM
     Indication: SUTURE INSERTION
     Dosage: 500 MG, BID
     Route: 065
     Dates: start: 20140723, end: 20140726

REACTIONS (2)
  - Drug ineffective [Unknown]
  - Stitch abscess [Unknown]
